FAERS Safety Report 5131857-7 (Version None)
Quarter: 2006Q4

REPORT INFORMATION
  Report Type: 
  Country: None (occurrence: None)
  Receive Date: 20061016
  Receipt Date: 20061006
  Transmission Date: 20070319
  Serious: Yes (Other)
  Sender: FDA-Public Use
  Company Number: 2006123651

PATIENT
  Sex: Female
  Weight: 77.1115 kg

DRUGS (6)
  1. ZOLOFT [Suspect]
     Indication: DEPRESSION
  2. FLEXERIL [Suspect]
     Indication: MUSCLE SPASMS
  3. ALEVE [Concomitant]
  4. ZOCOR [Concomitant]
  5. VYTORIN [Concomitant]
  6. DETROL [Concomitant]

REACTIONS (11)
  - CALCINOSIS [None]
  - DRUG EFFECT DECREASED [None]
  - DRUG INEFFECTIVE [None]
  - EXOSTOSIS [None]
  - MUSCLE SPASMS [None]
  - MUSCLE TIGHTNESS [None]
  - NEUROPATHY PERIPHERAL [None]
  - PAIN [None]
  - SOMNOLENCE [None]
  - STRESS [None]
  - WRONG TECHNIQUE IN DRUG USAGE PROCESS [None]
